FAERS Safety Report 5426081-4 (Version None)
Quarter: 2007Q3

REPORT INFORMATION
  Report Type: 
  Country: None (occurrence: None)
  Receive Date: 20070827
  Receipt Date: 20070814
  Transmission Date: 20080115
  Serious: Yes (Other)
  Sender: FDA-Public Use
  Company Number: US-JNJFOC-20070702984

PATIENT
  Sex: Female
  Weight: 63.5 kg

DRUGS (5)
  1. INVEGA [Suspect]
     Indication: ANXIETY
     Route: 048
  2. INVEGA [Suspect]
     Indication: AUTISM SPECTRUM DISORDER
     Route: 048
  3. CELEXA [Concomitant]
     Indication: ANXIETY
     Route: 048
  4. ADDERALL XR [Concomitant]
     Indication: ATTENTION DEFICIT/HYPERACTIVITY DISORDER
     Route: 048
  5. BENADRYL [Concomitant]
     Indication: SLEEP DISORDER
     Route: 048

REACTIONS (1)
  - NEUROLEPTIC MALIGNANT SYNDROME [None]
